FAERS Safety Report 22070308 (Version 1)
Quarter: 2023Q1

REPORT INFORMATION
  Report Type: Spontaneous
  Country: ES (occurrence: ES)
  Receive Date: 20230307
  Receipt Date: 20230307
  Transmission Date: 20230418
  Serious: Yes (Other)
  Sender: FDA-Public Use
  Company Number: None

PATIENT

DRUGS (7)
  1. XCOPRI [Suspect]
     Active Substance: CENOBAMATE
     Indication: Epilepsy
     Dosage: CENOBATO EN AUNMENTO PROGRESIVO. RETIRADA DE CENOBAMATO EN DOSIS DESCENDENTES EN ENERO DE 2023
     Route: 048
     Dates: start: 20220511, end: 202301
  2. ASPIRIN [Concomitant]
     Active Substance: ASPIRIN
     Indication: Product used for unknown indication
     Dosage: UNK
     Route: 065
     Dates: start: 20150325
  3. ZONEGRAN [Concomitant]
     Active Substance: ZONISAMIDE
     Indication: Epilepsy
     Dosage: UNK
     Route: 048
     Dates: start: 20200424
  4. ESLICARBAZEPINE ACETATE [Concomitant]
     Active Substance: ESLICARBAZEPINE ACETATE
     Indication: Epilepsy
     Dosage: UNK
     Route: 048
     Dates: start: 20141205
  5. VALIUM [Concomitant]
     Active Substance: DIAZEPAM
     Indication: Product used for unknown indication
     Dosage: UNK
     Route: 048
     Dates: start: 20220420
  6. TEVETENS [Concomitant]
     Indication: Product used for unknown indication
     Dosage: 600 UNK
     Route: 065
     Dates: start: 20150325
  7. OMEPRAZOL KERN PHARMA [Concomitant]
     Indication: Product used for unknown indication
     Dosage: 20 UNK
     Route: 048
     Dates: start: 20150325

REACTIONS (1)
  - Dermatitis psoriasiform [Recovering/Resolving]

NARRATIVE: CASE EVENT DATE: 20220828
